FAERS Safety Report 5850069-2 (Version None)
Quarter: 2008Q3

REPORT INFORMATION
  Report Type: 
  Country: None (occurrence: None)
  Receive Date: 20080819
  Receipt Date: 20080807
  Transmission Date: 20090109
  Serious: Yes (Death)
  Sender: FDA-Public Use
  Company Number: JP-ABBOTT-08P-087-0471257-00

PATIENT
  Age: 76 Year
  Sex: Male

DRUGS (13)
  1. LEUPROLIDE ACETATE [Suspect]
     Indication: PROSTATE CANCER STAGE IV
     Route: 058
     Dates: start: 20060712, end: 20070614
  2. LEUPROLIDE ACETATE [Suspect]
     Route: 058
     Dates: start: 20071121, end: 20071121
  3. DOCETAXEL [Suspect]
     Indication: PROSTATE CANCER STAGE IV
     Route: 042
     Dates: start: 20071024, end: 20071024
  4. DOCETAXEL [Suspect]
     Route: 042
     Dates: start: 20071107, end: 20071107
  5. DOCETAXEL [Suspect]
     Route: 042
     Dates: start: 20071121, end: 20071121
  6. DOCETAXEL [Suspect]
     Route: 042
     Dates: start: 20071205, end: 20071205
  7. BICALUTAMIDE [Concomitant]
     Indication: PROSTATE CANCER STAGE IV
     Route: 048
     Dates: start: 20060726, end: 20060912
  8. ESTRAMUSTINE PHOSPHATE SODIUM [Concomitant]
     Indication: PROSTATE CANCER STAGE IV
     Route: 048
     Dates: start: 20070313
  9. ZOLEDRONIC ACID [Concomitant]
     Indication: PROSTATE CANCER STAGE IV
     Route: 042
     Dates: start: 20071207, end: 20071207
  10. ZOLEDRONIC ACID [Concomitant]
     Route: 042
     Dates: start: 20071205, end: 20071205
  11. ENALAPRIL MALEATE [Concomitant]
     Indication: HYPERTENSION
     Route: 048
     Dates: start: 20071028, end: 20080116
  12. LOXOPROFEN [Concomitant]
     Indication: PAIN
     Route: 048
     Dates: start: 20071109, end: 20080116
  13. TEPRENONE [Concomitant]
     Indication: PAIN
     Route: 048
     Dates: start: 20071109, end: 20080116

REACTIONS (3)
  - CEREBRAL HAEMORRHAGE [None]
  - PLATELET COUNT DECREASED [None]
  - PROSTATE CANCER [None]
